FAERS Safety Report 4587858-0 (Version None)
Quarter: 2005Q1

REPORT INFORMATION
  Report Type: 
  Country: None (occurrence: None)
  Receive Date: 20050125
  Receipt Date: 20040930
  Transmission Date: 20050727
  Serious: No
  Sender: FDA-Public Use
  Company Number: USA040876758

PATIENT
  Sex: Female

DRUGS (4)
  1. FORTEO [Suspect]
     Indication: OSTEOPOROSIS
     Dates: start: 20040201
  2. COUMADIN [Concomitant]
  3. HYDROXYUREA [Concomitant]
  4. DIURETIC [Concomitant]

REACTIONS (1)
  - VISUAL ACUITY REDUCED [None]
